FAERS Safety Report 11626629 (Version 2)
Quarter: 2016Q2

REPORT INFORMATION
  Report Type: Spontaneous
  Country: US (occurrence: US)
  Receive Date: 20151013
  Receipt Date: 20160518
  Transmission Date: 20160815
  Serious: Yes (Other)
  Sender: FDA-Public Use
  Company Number: ADR-2015-01093

PATIENT
  Age: 39 Year
  Sex: Female
  Weight: 101 kg

DRUGS (7)
  1. LEXAPRO [Suspect]
     Active Substance: ESCITALOPRAM OXALATE
  2. ALBUTEROL. [Suspect]
     Active Substance: ALBUTEROL
  3. ELS IL [Suspect]
     Active Substance: UNSPECIFIED INGREDIENT
  4. VITAMIN D [Suspect]
     Active Substance: CHOLECALCIFEROL
  5. ALLEGRA [Suspect]
     Active Substance: FEXOFENADINE HYDROCHLORIDE
  6. LISINOPRIL. [Suspect]
     Active Substance: LISINOPRIL
  7. LIORESAL [Suspect]
     Active Substance: BACLOFEN
     Route: 037

REACTIONS (5)
  - Therapeutic response decreased [Recovered/Resolved]
  - Device kink [None]
  - Pain [Recovered/Resolved]
  - Device inversion [None]
  - Device dislocation [None]
